FAERS Safety Report 8577275 (Version 3)
Quarter: 2013Q2

REPORT INFORMATION
  Report Type: Spontaneous
  Country: FR (occurrence: None)
  Receive Date: 20120517
  Receipt Date: 20130430
  Transmission Date: 20140414
  Serious: Yes (Hospitalization, Disabling, Other)
  Sender: FDA-Public Use
  Company Number: 2011-309

PATIENT
  Age: 43 Year
  Sex: Male
  Weight: 81 kg

DRUGS (2)
  1. PRIALT [Suspect]
     Indication: NEURALGIA
     Dosage: 0.05 UG, ONCE/HOUR, INTRATHECAL
     Route: 037
     Dates: start: 20110518, end: 201106
  2. TEGRETOL [Concomitant]

REACTIONS (20)
  - PERSECUTORY DELUSION [None]
  - SKIN EXFOLIATION [None]
  - NEPHROLITHIASIS [None]
  - OVERDOSE [None]
  - HALLUCINATION [None]
  - DELIRIUM [None]
  - AGITATION [None]
  - ANXIETY [None]
  - BURNING SENSATION [None]
  - PARANOIA [None]
  - VISUAL IMPAIRMENT [None]
  - TREMOR [None]
  - DRUG WITHDRAWAL SYNDROME [None]
  - ASTHENIA [None]
  - Dysstasia [None]
  - Psychotic disorder [None]
  - Hallucination, visual [None]
  - Suicidal ideation [None]
  - Personality disorder [None]
  - Mania [None]
